FAERS Safety Report 21147252 (Version 1)
Quarter: 2022Q3

REPORT INFORMATION
  Report Type: Spontaneous
  Country: US (occurrence: None)
  Receive Date: 20220728
  Receipt Date: 20220728
  Transmission Date: 20221026
  Serious: Yes (Disabling, Other)
  Sender: FDA-Public Use
  Company Number: None

PATIENT
  Sex: Female

DRUGS (1)
  1. FINASTERIDE\KETOCONAZOLE\MINOXIDIL\SPIRONOLACTONE\TRETINOIN [Suspect]
     Active Substance: FINASTERIDE\KETOCONAZOLE\MINOXIDIL\SPIRONOLACTONE\TRETINOIN
     Indication: Alopecia
     Dosage: OTHER QUANTITY : 2 OUNCE(S);?FREQUENCY : DAILY;?
     Route: 061
     Dates: start: 20220725, end: 20220726

REACTIONS (2)
  - Chemical burns of eye [None]
  - Product label issue [None]

NARRATIVE: CASE EVENT DATE: 20220726
